FAERS Safety Report 5667025-X (Version None)
Quarter: 2008Q1

REPORT INFORMATION
  Report Type: 
  Country: None (occurrence: None)
  Receive Date: 20080315
  Receipt Date: 20080108
  Transmission Date: 20080703
  Serious: No
  Sender: FDA-Public Use
  Company Number: US-ABBOTT-08P-163-0433027-00

PATIENT
  Sex: Female
  Weight: 68.1 kg

DRUGS (11)
  1. HUMIRA [Suspect]
     Indication: PSORIATIC ARTHROPATHY
     Route: 058
     Dates: start: 20071227
  2. TYLENOL [Concomitant]
     Indication: INSOMNIA
  3. CELECOXIB [Concomitant]
     Indication: ARTHRITIS
     Route: 048
  4. LORATADINE [Concomitant]
     Indication: PRURITUS
  5. LORATADINE [Concomitant]
     Indication: SKIN ULCER
  6. LORATADINE [Concomitant]
     Indication: URTICARIA
  7. GUAIFENESIN [Concomitant]
     Indication: RHINORRHOEA
     Route: 048
  8. GUAIFENESIN [Concomitant]
     Indication: SINUS DISORDER
  9. ROZERON [Concomitant]
     Indication: INSOMNIA
     Route: 048
  10. AMBIEN CR [Concomitant]
     Indication: INSOMNIA
     Route: 048
  11. SCENSCIN HORMONE [Concomitant]
     Indication: HORMONE REPLACEMENT THERAPY
     Route: 048

REACTIONS (4)
  - COUGH [None]
  - HEADACHE [None]
  - NIGHT SWEATS [None]
  - NIGHTMARE [None]
